FAERS Safety Report 22218768 (Version 3)
Quarter: 2023Q4

REPORT INFORMATION
  Report Type: Spontaneous
  Country: BR (occurrence: BR)
  Receive Date: 20230417
  Receipt Date: 20231007
  Transmission Date: 20240110
  Serious: Yes (Other)
  Sender: FDA-Public Use
  Company Number: BR-JNJFOC-20230429440

PATIENT
  Age: 30 Year
  Sex: Female

DRUGS (1)
  1. STELARA [Suspect]
     Active Substance: USTEKINUMAB
     Indication: Psoriasis
     Route: 058
     Dates: start: 2020

REACTIONS (3)
  - Crohn^s disease [Unknown]
  - Psoriasis [Unknown]
  - Rash papular [Recovered/Resolved]

NARRATIVE: CASE EVENT DATE: 20210101
